FAERS Safety Report 5129359-7 (Version None)
Quarter: 2006Q4

REPORT INFORMATION
  Report Type: 
  Country: None (occurrence: None)
  Receive Date: 20061018
  Receipt Date: 20060320
  Transmission Date: 20070319
  Serious: Yes (Hospitalization)
  Sender: FDA-Public Use
  Company Number: CA-BAYER-200611100GDS

PATIENT
  Age: 46 Year
  Sex: Male

DRUGS (2)
  1. CIPRO [Suspect]
     Indication: SINUSITIS
     Route: 065
     Dates: start: 20050727, end: 20050801
  2. FLAGYL [Concomitant]
     Indication: DRUG USE FOR UNKNOWN INDICATION

REACTIONS (4)
  - CARDIAC FAILURE CONGESTIVE [None]
  - HEPATIC FAILURE [None]
  - RENAL FAILURE [None]
  - SERUM SICKNESS [None]
